FAERS Safety Report 7497375-6 (Version None)
Quarter: 2011Q2

REPORT INFORMATION
  Report Type: 
  Country: None (occurrence: None)
  Receive Date: 20110523
  Receipt Date: 20110202
  Transmission Date: 20111010
  Serious: No
  Sender: FDA-Public Use
  Company Number: US-NOVEN-11US001715

PATIENT
  Sex: Female

DRUGS (1)
  1. DAYTRANA [Suspect]
     Indication: PRODUCT USED FOR UNKNOWN INDICATION
     Dosage: 30 MG, QD
     Route: 062
     Dates: start: 20090101

REACTIONS (3)
  - DRUG ADMINISTRATION ERROR [None]
  - NO ADVERSE EVENT [None]
  - PRODUCT QUALITY ISSUE [None]
